FAERS Safety Report 11986776 (Version 1)
Quarter: 2016Q1

REPORT INFORMATION
  Report Type: Spontaneous
  Country: US (occurrence: None)
  Receive Date: 20160201
  Receipt Date: 20160201
  Transmission Date: 20160526
  Serious: No
  Sender: FDA-Public Use
  Company Number: None

PATIENT

DRUGS (1)
  1. SEVOFLURANE (SEVOFLURANE) PIRAMAL CRITICAL CARE, INC. [Suspect]
     Active Substance: SEVOFLURANE
     Dosage: 250 ML, INHALATION, RESPIRATORY

REACTIONS (1)
  - Product expiration date issue [None]
